FAERS Safety Report 8393448-4 (Version None)
Quarter: 2012Q2

REPORT INFORMATION
  Report Type: 
  Country: None (occurrence: None)
  Receive Date: 20120529
  Receipt Date: 20120514
  Transmission Date: 20120825
  Serious: Yes (Other)
  Sender: FDA-Public Use
  Company Number: CHPA2012US011011

PATIENT
  Age: 80 Year
  Sex: Female

DRUGS (1)
  1. EXCEDRIN (MIGRAINE) [Suspect]
     Indication: ARTHRITIS
     Dosage: UNK, UNK
     Route: 048

REACTIONS (3)
  - OFF LABEL USE [None]
  - ATRIAL FIBRILLATION [None]
  - CARDIOMEGALY [None]
